FAERS Safety Report 5485345-9 (Version None)
Quarter: 2007Q4

REPORT INFORMATION
  Report Type: 
  Country: None (occurrence: None)
  Receive Date: 20071010
  Receipt Date: 20071010
  Transmission Date: 20080405
  Serious: Yes (Life-Threatening)
  Sender: FDA-Public Use
  Company Number: None

PATIENT
  Sex: Female

DRUGS (2)
  1. MIDAZOLAM HCL [Suspect]
     Indication: SEDATION
     Dosage: 14 MG TOTAL IV
     Route: 042
     Dates: start: 20070206, end: 20070206
  2. FENTANYL CITRATE [Suspect]
     Indication: SEDATION
     Dosage: 175 MCG TOTAL IV
     Route: 042
     Dates: start: 20070206, end: 20070206

REACTIONS (2)
  - RESPIRATORY DEPRESSION [None]
  - SEDATION [None]
